FAERS Safety Report 7729775-0 (Version None)
Quarter: 2011Q3

REPORT INFORMATION
  Report Type: 
  Country: None (occurrence: None)
  Receive Date: 20110906
  Receipt Date: 20110823
  Transmission Date: 20111222
  Serious: Yes (Hospitalization)
  Sender: FDA-Public Use
  Company Number: DE-CELGENEUS-062-50794-11080353

PATIENT
  Age: 63 Year
  Sex: Male
  Weight: 96 kg

DRUGS (7)
  1. EZETIMIBE [Concomitant]
     Route: 065
  2. IMIPENEM [Concomitant]
     Route: 041
     Dates: start: 20110730
  3. VIDAZA [Suspect]
     Dosage: 150 MILLIGRAM
     Route: 041
     Dates: start: 20110701, end: 20110705
  4. ACID ACETYLSALICYLIC [Concomitant]
     Route: 065
     Dates: start: 20110729
  5. CYTARABINE [Suspect]
     Dosage: 1400 MILLIGRAM
     Route: 065
     Dates: start: 20110706, end: 20110712
  6. LEVOTHYROXINE SODIUM [Concomitant]
     Route: 065
  7. DAUNORUBICIN HCL [Suspect]
     Dosage: 210 MILLIGRAM
     Route: 065
     Dates: start: 20110708, end: 20110710

REACTIONS (1)
  - PNEUMATOSIS INTESTINALIS [None]
